FAERS Safety Report 16970084 (Version 1)
Quarter: 2019Q4

REPORT INFORMATION
  Report Type: Report from Study
  Country: US (occurrence: US)
  Receive Date: 20191029
  Receipt Date: 20191029
  Transmission Date: 20200122
  Serious: Yes (Hospitalization, Other)
  Sender: FDA-Public Use
  Company Number: NVSC2019US018529

PATIENT
  Sex: Male

DRUGS (1)
  1. ENTRESTO [Suspect]
     Active Substance: SACUBITRIL\VALSARTAN
     Indication: CARDIOMYOPATHY
     Dosage: UNK, QD
     Route: 048

REACTIONS (9)
  - Fluid retention [Unknown]
  - Weight increased [Unknown]
  - Pulmonary hypertension [Unknown]
  - Coronary artery disease [Unknown]
  - Lip dry [Unknown]
  - Chapped lips [Unknown]
  - Product use in unapproved indication [Unknown]
  - Thirst [Unknown]
  - Inappropriate schedule of product administration [Unknown]
